FAERS Safety Report 9202160 (Version 1)
Quarter: 2013Q2

REPORT INFORMATION
  Report Type: Spontaneous
  Country: US (occurrence: US)
  Receive Date: 20130401
  Receipt Date: 20130401
  Transmission Date: 20140414
  Serious: Yes (Hospitalization)
  Sender: FDA-Public Use
  Company Number: US-GLAXOSMITHKLINE-A1017038A

PATIENT
  Sex: Male

DRUGS (3)
  1. POTIGA [Suspect]
     Indication: CONVULSION
     Dosage: 600MG PER DAY
     Route: 048
     Dates: start: 2013
  2. DILANTIN [Concomitant]
  3. KEPPRA [Concomitant]

REACTIONS (1)
  - Hypotension [Unknown]
